FAERS Safety Report 8258859-6 (Version None)
Quarter: 2012Q2

REPORT INFORMATION
  Report Type: 
  Country: None (occurrence: None)
  Receive Date: 20120404
  Receipt Date: 20120330
  Transmission Date: 20120825
  Serious: Yes (Death)
  Sender: FDA-Public Use
  Company Number: JP-SANOFI-AVENTIS-2012SA012603

PATIENT
  Sex: Male

DRUGS (2)
  1. TAXOTERE [Suspect]
     Indication: PROSTATE CANCER
     Dosage: 80 MG/BODY, DAILY
     Route: 042
     Dates: start: 20120203
  2. ESTRACYT [Concomitant]
     Route: 048

REACTIONS (3)
  - CARDIAC FAILURE [None]
  - HYPERKALAEMIA [None]
  - ARRHYTHMIA [None]
